FAERS Safety Report 9776914 (Version 2)
Quarter: 2014Q1

REPORT INFORMATION
  Report Type: Spontaneous
  Country: FR (occurrence: FR)
  Receive Date: 20131221
  Receipt Date: 20140114
  Transmission Date: 20141002
  Serious: Yes (Life-Threatening, Hospitalization, Other)
  Sender: FDA-Public Use
  Company Number: US-ASTRAZENECA-2013SE91763

PATIENT
  Age: 236 Day
  Sex: Male
  Weight: 6.5 kg

DRUGS (4)
  1. SYNAGIS [Suspect]
     Indication: ANTIVIRAL PROPHYLAXIS
     Dosage: FIRST INJECTION
     Route: 030
     Dates: start: 20131003, end: 20131003
  2. SYNAGIS [Suspect]
     Indication: ANTIVIRAL PROPHYLAXIS
     Dosage: SECOND INJECTION
     Route: 030
     Dates: start: 20131031, end: 20131031
  3. SYNAGIS [Suspect]
     Indication: ANTIVIRAL PROPHYLAXIS
     Dosage: THIRD INJECTION
     Route: 030
     Dates: start: 20131128, end: 20131128
  4. INEXIUM [Concomitant]
     Indication: GASTROOESOPHAGEAL REFLUX DISEASE
     Route: 048

REACTIONS (7)
  - Pericarditis [Unknown]
  - Respiratory tract congestion [Unknown]
  - Wheezing [Recovering/Resolving]
  - Bronchopulmonary dysplasia [Unknown]
  - Bronchiolitis [Unknown]
  - Infantile asthma [Unknown]
  - Oxygen supplementation [Unknown]
